FAERS Safety Report 10189784 (Version 1)
Quarter: 2014Q2

REPORT INFORMATION
  Report Type: Spontaneous
  Country: AT (occurrence: AT)
  Receive Date: 20140522
  Receipt Date: 20140522
  Transmission Date: 20141212
  Serious: Yes (Other)
  Sender: FDA-Public Use
  Company Number: AT-ACTAVIS-2014-10161

PATIENT
  Age: 52 Year
  Sex: Female

DRUGS (11)
  1. PANTOPRAZOLE (UNKNOWN) [Suspect]
     Indication: PRODUCT USED FOR UNKNOWN INDICATION
     Dosage: 80 MG, DAILY
     Route: 065
     Dates: start: 20100415
  2. PANTOPRAZOLE (UNKNOWN) [Suspect]
     Dosage: 40 MG, DAILY
     Route: 065
     Dates: end: 20100414
  3. HYDROCHLOROTHIAZIDE (UNKNOWN) [Suspect]
     Indication: PRODUCT USED FOR UNKNOWN INDICATION
     Dosage: 160/25MG DAILY
     Route: 048
     Dates: end: 20100421
  4. TRILEPTAL [Suspect]
     Indication: PRODUCT USED FOR UNKNOWN INDICATION
     Dosage: 300 TO 600MG DAILY
     Route: 048
     Dates: start: 20100414, end: 20100415
  5. TRILEPTAL [Suspect]
     Dosage: 900 MG, DAILY
     Route: 048
     Dates: start: 20100418, end: 20100421
  6. OXAZEPAM [Concomitant]
     Indication: PRODUCT USED FOR UNKNOWN INDICATION
     Dosage: 50-130 MG DAILY
     Route: 048
     Dates: start: 20100414, end: 20100517
  7. ZOLPIDEM [Concomitant]
     Indication: PRODUCT USED FOR UNKNOWN INDICATION
     Dosage: 10 MG, DAILY
     Dates: start: 20100507
  8. ZOLPIDEM [Concomitant]
     Dosage: 20 MG, DAILY
     Route: 048
     Dates: end: 20100430
  9. FENTANYL [Concomitant]
     Indication: PRODUCT USED FOR UNKNOWN INDICATION
     Dosage: 75 MCG DAILY
  10. CALCIUM CARBONATE [Concomitant]
     Indication: PRODUCT USED FOR UNKNOWN INDICATION
     Dosage: 1500 MG, DAILY
     Route: 048
  11. CHOLECALCIFEROL [Concomitant]
     Indication: PRODUCT USED FOR UNKNOWN INDICATION
     Dosage: 400 IU, DAILY
     Route: 065

REACTIONS (4)
  - Hyponatraemia [Recovering/Resolving]
  - Headache [Recovering/Resolving]
  - Nausea [Recovering/Resolving]
  - Vomiting [Recovering/Resolving]
